FAERS Safety Report 16701006 (Version 3)
Quarter: 2019Q3

REPORT INFORMATION
  Report Type: Report from Study
  Country: US (occurrence: US)
  Receive Date: 20190814
  Receipt Date: 20190920
  Transmission Date: 20191004
  Serious: No
  Sender: FDA-Public Use
  Company Number: US-TESARO-2019-TSO01640-US

PATIENT
  Age: 68 Year
  Sex: Female
  Weight: 94.3 kg

DRUGS (2)
  1. NIRAPARIB [Suspect]
     Active Substance: NIRAPARIB
     Dosage: 200 MG, QPM WITHOUT FOOD
     Route: 048
     Dates: start: 20190415
  2. CRESTOR [Suspect]
     Active Substance: ROSUVASTATIN CALCIUM
     Indication: PRODUCT USED FOR UNKNOWN INDICATION

REACTIONS (25)
  - Skin odour abnormal [Unknown]
  - Blood glucose increased [Not Recovered/Not Resolved]
  - Blood cholesterol increased [Not Recovered/Not Resolved]
  - Fatigue [Not Recovered/Not Resolved]
  - Abdominal pain upper [Recovered/Resolved]
  - Photophobia [Not Recovered/Not Resolved]
  - Sunburn [Not Recovered/Not Resolved]
  - Blood triglycerides increased [Not Recovered/Not Resolved]
  - Glucose tolerance impaired [Recovering/Resolving]
  - Arthralgia [Unknown]
  - Dysgeusia [Unknown]
  - Calcinosis [Not Recovered/Not Resolved]
  - Blood glucose fluctuation [Recovered/Resolved]
  - Low density lipoprotein increased [Not Recovered/Not Resolved]
  - Insomnia [Recovered/Resolved]
  - Drug hypersensitivity [Unknown]
  - Musculoskeletal pain [Not Recovered/Not Resolved]
  - Ageusia [Unknown]
  - Dehydration [Unknown]
  - Vomiting [Unknown]
  - Nausea [Not Recovered/Not Resolved]
  - Depression [Unknown]
  - Dizziness [Recovered/Resolved]
  - Constipation [Unknown]
  - Headache [Recovered/Resolved]

NARRATIVE: CASE EVENT DATE: 20190301
